FAERS Safety Report 5242731-X (Version None)
Quarter: 2007Q1

REPORT INFORMATION
  Report Type: 
  Country: None (occurrence: None)
  Receive Date: 20070221
  Receipt Date: 20070213
  Transmission Date: 20070707
  Serious: Yes (Other)
  Sender: FDA-Public Use
  Company Number: 2007RR-05481

PATIENT
  Age: 59 Year
  Sex: Male

DRUGS (3)
  1. ROSIGLITAZONE [Suspect]
  2. FENOFIBRATE [Suspect]
     Dosage: 160MG PER DAY
  3. METFORMIN HYDROCHLORIDE [Concomitant]

REACTIONS (2)
  - GLYCOSYLATED HAEMOGLOBIN DECREASED [None]
  - HIGH DENSITY LIPOPROTEIN DECREASED [None]
